FAERS Safety Report 18889251 (Version 1)
Quarter: 2021Q1

REPORT INFORMATION
  Report Type: Spontaneous
  Country: US (occurrence: US)
  Receive Date: 20210213
  Receipt Date: 20210213
  Transmission Date: 20210420
  Serious: No
  Sender: FDA-Public Use
  Company Number: US-UNITED THERAPEUTICS-UNT-2021-002475

PATIENT
  Sex: Male
  Weight: 68.03 kg

DRUGS (5)
  1. UPTRAVI [Suspect]
     Active Substance: SELEXIPAG
     Indication: PULMONARY ARTERIAL HYPERTENSION
     Dosage: 200 ?G, BID
     Route: 048
  2. OPSUMIT [Suspect]
     Active Substance: MACITENTAN
     Indication: PULMONARY ARTERIAL HYPERTENSION
     Dosage: 10 MG, QD
     Route: 048
  3. ORENITRAM [Suspect]
     Active Substance: TREPROSTINIL
     Indication: PRODUCT USED FOR UNKNOWN INDICATION
     Dosage: UNK
     Route: 048
     Dates: end: 202009
  4. OPSUMIT [Suspect]
     Active Substance: MACITENTAN
     Dosage: UNK
     Route: 048
  5. OPSUMIT [Suspect]
     Active Substance: MACITENTAN
     Dosage: UNK
     Route: 048

REACTIONS (4)
  - Pain [Unknown]
  - Dyspnoea [Unknown]
  - Abdominal pain upper [Unknown]
  - Headache [Unknown]
